FAERS Safety Report 14363022 (Version 2)
Quarter: 2018Q1

REPORT INFORMATION
  Report Type: Spontaneous
  Country: GB (occurrence: GB)
  Receive Date: 20180108
  Receipt Date: 20180123
  Transmission Date: 20180509
  Serious: Yes (Death, Life-Threatening, Hospitalization, Other)
  Sender: FDA-Public Use
  Company Number: GB-BRISTOL-MYERS SQUIBB COMPANY-BMS-2018-000792

PATIENT
  Age: 7 Decade
  Sex: Male

DRUGS (2)
  1. YERVOY [Suspect]
     Active Substance: IPILIMUMAB
     Indication: METASTATIC MALIGNANT MELANOMA
     Route: 065
  2. OPDIVO [Suspect]
     Active Substance: NIVOLUMAB
     Indication: METASTATIC MALIGNANT MELANOMA
     Dosage: UNAVAILABLE
     Route: 065

REACTIONS (9)
  - Pneumonitis [Fatal]
  - Autoimmune myocarditis [Fatal]
  - Autoimmune colitis [Fatal]
  - Chest pain [Unknown]
  - Rash generalised [Unknown]
  - Trifascicular block [Not Recovered/Not Resolved]
  - Respiratory failure [Not Recovered/Not Resolved]
  - Dyspnoea [Unknown]
  - Chromaturia [Unknown]

NARRATIVE: CASE EVENT DATE: 201712
